FAERS Safety Report 5918122-2 (Version None)
Quarter: 2008Q4

REPORT INFORMATION
  Report Type: 
  Country: None (occurrence: None)
  Receive Date: 20081014
  Receipt Date: 20081013
  Transmission Date: 20090506
  Serious: Yes (Hospitalization, Other)
  Sender: FDA-Public Use
  Company Number: GB-ROXANE LABORATORIES, INC.-2008-RO-00124RO

PATIENT
  Age: 51 Year
  Sex: Male

DRUGS (8)
  1. PROPRANOLOL [Suspect]
     Indication: MIGRAINE
  2. SILDENAFIL CITRATE [Suspect]
     Indication: ERECTILE DYSFUNCTION
  3. ATENOLOL [Suspect]
     Indication: HYPERTENSION
  4. DOSULEPIN [Suspect]
     Indication: DEPRESSION
  5. HYDROCORTISONE [Concomitant]
     Indication: BLOOD CORTISOL DECREASED
  6. THYROXINE REPLACEMENT [Concomitant]
     Indication: THYROXINE DECREASED
  7. TESTOSTERONE REPLACEMENT [Concomitant]
     Indication: BLOOD TESTOSTERONE DECREASED
  8. GROWTH HORMONE REPLACEMENT [Concomitant]
     Indication: BLOOD GROWTH HORMONE DECREASED

REACTIONS (3)
  - HYPOPITUITARISM [None]
  - PITUITARY HAEMORRHAGE [None]
  - PITUITARY TUMOUR [None]
